FAERS Safety Report 10161916 (Version 1)
Quarter: 2014Q2

REPORT INFORMATION
  Report Type: Report from Study
  Country: GB (occurrence: GB)
  Receive Date: 20140509
  Receipt Date: 20140509
  Transmission Date: 20141212
  Serious: Yes (Hospitalization)
  Sender: FDA-Public Use
  Company Number: GB-JNJFOC-20140500604

PATIENT
  Age: 40 Year
  Sex: Male
  Weight: 100 kg

DRUGS (5)
  1. USTEKINUMAB [Suspect]
     Indication: PSORIASIS
     Route: 058
     Dates: start: 20130624
  2. RAMIPRIL [Concomitant]
     Route: 065
     Dates: start: 20040701
  3. AMLODIPINE [Concomitant]
     Route: 065
     Dates: start: 20040701
  4. BENDROFLUMETHIAZIDE [Concomitant]
     Route: 065
     Dates: start: 20040701
  5. ISONIAZID [Concomitant]
     Route: 065
     Dates: start: 20130718, end: 20130718

REACTIONS (2)
  - Pleurisy viral [Recovered/Resolved]
  - Malaise [Recovered/Resolved]
